FAERS Safety Report 5975195-9 (Version None)
Quarter: 2008Q4

REPORT INFORMATION
  Report Type: 
  Country: None (occurrence: None)
  Receive Date: 20081202
  Receipt Date: 20080922
  Transmission Date: 20090506
  Serious: No
  Sender: FDA-Public Use
  Company Number: US-ABBOTT-08P-163-0477414-00

PATIENT
  Sex: Female

DRUGS (2)
  1. LUPRON [Suspect]
     Indication: ENDOMETRIOSIS
     Dates: start: 20080917
  2. LUPRON [Suspect]
     Route: 030

REACTIONS (2)
  - ABDOMINAL PAIN LOWER [None]
  - NAUSEA [None]
